FAERS Safety Report 6606489-1 (Version None)
Quarter: 2010Q1

REPORT INFORMATION
  Report Type: 
  Country: None (occurrence: None)
  Receive Date: 20100226
  Receipt Date: 20100219
  Transmission Date: 20100710
  Serious: Yes (Hospitalization)
  Sender: FDA-Public Use
  Company Number: PHHY2010US10220

PATIENT
  Sex: Female
  Weight: 40.816 kg

DRUGS (16)
  1. TEKTURNA [Suspect]
  2. NAMENDA [Suspect]
  3. ARICEPT [Suspect]
  4. NAMOXDIL [Suspect]
  5. PLAVIX [Suspect]
  6. PROCARDIA [Suspect]
  7. CELEBREX [Suspect]
  8. POTONIX [Suspect]
  9. MEGESTROL ACETATE [Suspect]
  10. COANADIN [Suspect]
  11. FOLIC ACID [Suspect]
  12. AYESURBY [Suspect]
  13. ZOCOR [Suspect]
  14. VITAMIN B COMPLEX TAB [Suspect]
  15. VITAMIN C [Suspect]
  16. INSULIN [Suspect]

REACTIONS (6)
  - ASTHENIA [None]
  - CYSTITIS [None]
  - DIALYSIS [None]
  - HAEMORRHAGE [None]
  - MALAISE [None]
  - WEIGHT DECREASED [None]
